FAERS Safety Report 14505527 (Version 1)
Quarter: 2018Q1

REPORT INFORMATION
  Report Type: Report from Study
  Country: CA (occurrence: CA)
  Receive Date: 20180208
  Receipt Date: 20180208
  Transmission Date: 20180509
  Serious: Yes (Other)
  Sender: FDA-Public Use
  Company Number: CA-REGENERON PHARMACEUTICALS, INC.-2018-12872

PATIENT

DRUGS (1)
  1. EYLEA [Suspect]
     Active Substance: AFLIBERCEPT
     Indication: DIABETIC RETINAL OEDEMA
     Dosage: UNSPECIFIED NUMBER OF INJECTIONS
     Dates: start: 20171127

REACTIONS (3)
  - Diabetic retinal oedema [Unknown]
  - Drug dose omission [Unknown]
  - Influenza [Unknown]
